FAERS Safety Report 8778357 (Version 2)
Quarter: 2012Q4

REPORT INFORMATION
  Report Type: 
  Country: US (occurrence: US)
  Receive Date: 20120912
  Receipt Date: 20121008
  Transmission Date: 20130627
  Serious: No
  Sender: FDA-Public Use
  Company Number: US-ASTRAZENECA-2012SE65203

PATIENT
  Age: 64 Year
  Sex: Female

DRUGS (5)
  1. BRILINTA [Suspect]
     Route: 048
     Dates: start: 201207
  2. CRESTOR [Concomitant]
  3. NIASPAN ER [Concomitant]
  4. CEREFOLIN [Concomitant]
  5. ESTROPIPATE [Concomitant]

REACTIONS (2)
  - Abnormal sleep-related event [Recovered/Resolved]
  - Middle insomnia [Recovered/Resolved]
